FAERS Safety Report 19270844 (Version 1)
Quarter: 2021Q2

REPORT INFORMATION
  Report Type: Spontaneous
  Country: US (occurrence: US)
  Receive Date: 20210518
  Receipt Date: 20210518
  Transmission Date: 20210717
  Serious: Yes (Hospitalization)
  Sender: FDA-Public Use
  Company Number: US-SAGENT PHARMACEUTICALS-2021SAG000968

PATIENT
  Age: 59 Year
  Sex: Female
  Weight: 97.3 kg

DRUGS (5)
  1. FLUOROURACIL. [Suspect]
     Active Substance: FLUOROURACIL
     Indication: PANCREATIC CARCINOMA
     Dosage: 4800 MG, DAYS 1,15 OF 28 DAYS CYCLE
     Route: 042
     Dates: start: 20200709, end: 20201118
  2. LEUCOVORIN                         /00566701/ [Suspect]
     Active Substance: LEUCOVORIN
     Indication: PANCREATIC CARCINOMA
     Dosage: 800 MG, DAYS 1,15 OF 28 DAYS CYCLE
     Route: 042
     Dates: start: 20200709, end: 20201118
  3. GEMCITABINE. [Suspect]
     Active Substance: GEMCITABINE
     Indication: PANCREATIC CARCINOMA
     Dosage: 1600 MG, WEEKLY
     Route: 042
     Dates: start: 20200709, end: 20210113
  4. IRINOTECAN [Suspect]
     Active Substance: IRINOTECAN
     Indication: PANCREATIC CARCINOMA
     Dosage: 140 MG, DAYS 1, 15 OF 28 DAY CYCLE
     Route: 042
     Dates: start: 20200709, end: 20201118
  5. ABRAXANE [Suspect]
     Active Substance: PACLITAXEL
     Indication: PANCREATIC CARCINOMA
     Dosage: 200 MG, WEEKLY
     Route: 042
     Dates: start: 20200709, end: 20210113

REACTIONS (1)
  - Arthritis bacterial [Recovered/Resolved with Sequelae]

NARRATIVE: CASE EVENT DATE: 20210124
